FAERS Safety Report 9046914 (Version 1)
Quarter: 2013Q1

REPORT INFORMATION
  Report Type: Report from Study
  Country: CA (occurrence: CA)
  Receive Date: 20130204
  Receipt Date: 20130204
  Transmission Date: 20140127
  Serious: Yes (Other)
  Sender: FDA-Public Use
  Company Number: CA-JNJFOC-20130113104

PATIENT
  Age: 47 None
  Sex: Female
  Weight: 106 kg

DRUGS (8)
  1. REMICADE [Suspect]
     Indication: PSORIASIS
     Route: 042
     Dates: start: 20121211
  2. REMICADE [Suspect]
     Indication: PSORIASIS
     Route: 042
     Dates: start: 20130122, end: 20130122
  3. METFORMIN [Concomitant]
     Route: 048
  4. ALTACE [Concomitant]
     Route: 048
  5. HYDROCHLOROTHIAZIDE [Concomitant]
     Route: 065
  6. LOSEC [Concomitant]
     Route: 048
  7. METOPROLOL [Concomitant]
     Dosage: HALF TABLET
     Route: 048
  8. HUMALOG [Concomitant]
     Route: 065

REACTIONS (6)
  - Infusion related reaction [Recovering/Resolving]
  - Flushing [Recovering/Resolving]
  - Nausea [Recovering/Resolving]
  - Hypertension [Recovered/Resolved]
  - Palpitations [Recovering/Resolving]
  - Feeling hot [Recovering/Resolving]
